FAERS Safety Report 7600087-9 (Version None)
Quarter: 2011Q3

REPORT INFORMATION
  Report Type: 
  Country: None (occurrence: None)
  Receive Date: 20110706
  Receipt Date: 20110706
  Transmission Date: 20111222
  Serious: Yes (Life-Threatening)
  Sender: FDA-Public Use
  Company Number: None

PATIENT
  Sex: Female

DRUGS (1)
  1. BETASERON [Suspect]
     Indication: MULTIPLE SCLEROSIS
     Dosage: 0.25MG(1ML) EVERY OTHER DAYS SUB-Q
     Route: 058
     Dates: start: 20110601, end: 20110615

REACTIONS (4)
  - PRURITUS [None]
  - VOMITING [None]
  - RASH [None]
  - DIZZINESS [None]
